FAERS Safety Report 8869087 (Version 1)
Quarter: 2012Q4

REPORT INFORMATION
  Report Type: 
  Country: US (occurrence: None)
  Receive Date: 20121022
  Receipt Date: 20121022
  Transmission Date: 20130627
  Serious: No
  Sender: FDA-Public Use
  Company Number: AUR-APL-2012-04429

PATIENT

DRUGS (3)
  1. GABAPENTIN [Suspect]
     Indication: EPILEPSY
     Dosage: Transplacental
     Route: 064
  2. LEVETIRACETAM [Suspect]
     Indication: EPILEPSY
     Dosage: Transplacental
     Route: 064
  3. TEGRETOL [Suspect]
     Indication: EPILEPSY
     Route: 064

REACTIONS (3)
  - Maternal drugs affecting foetus [None]
  - Talipes [None]
  - Congenital anomaly [None]
